FAERS Safety Report 4331940-X (Version None)
Quarter: 2004Q2

REPORT INFORMATION
  Report Type: 
  Country: None (occurrence: None)
  Receive Date: 20040405
  Receipt Date: 20030606
  Transmission Date: 20050107
  Serious: No
  Sender: FDA-Public Use
  Company Number: US-GLAXOSMITHKLINE-A0411849A

PATIENT
  Age: 57 Year
  Sex: Female

DRUGS (4)
  1. SEREVENT [Suspect]
     Indication: EMPHYSEMA
     Dosage: 2PUFF TWICE PER DAY
     Route: 055
     Dates: start: 20000101
  2. ZOLOFT [Concomitant]
  3. AEROBID [Concomitant]
  4. SINGULAIR [Concomitant]

REACTIONS (2)
  - HEART RATE INCREASED [None]
  - SINUS TACHYCARDIA [None]
